FAERS Safety Report 18217674 (Version 1)
Quarter: 2020Q3

REPORT INFORMATION
  Report Type: Spontaneous
  Country: US (occurrence: US)
  Receive Date: 20200831
  Receipt Date: 20200831
  Transmission Date: 20201103
  Serious: Yes (Hospitalization)
  Sender: FDA-Public Use
  Company Number: None

PATIENT
  Age: 89 Year
  Sex: Male
  Weight: 54.43 kg

DRUGS (1)
  1. TIMOLOL (TIMOLOL MALEATE 0.25% SOLN, OPHN) [Suspect]
     Active Substance: TIMOLOL MALEATE
     Indication: GLAUCOMA
     Dates: start: 20141008, end: 20200402

REACTIONS (3)
  - Hypotension [None]
  - Intentional product misuse [None]
  - Bradycardia [None]

NARRATIVE: CASE EVENT DATE: 20200402
